FAERS Safety Report 25597870 (Version 1)
Quarter: 2025Q3

REPORT INFORMATION
  Report Type: Spontaneous
  Country: AE (occurrence: AE)
  Receive Date: 20250723
  Receipt Date: 20250723
  Transmission Date: 20251021
  Serious: Yes (Other)
  Sender: PFIZER
  Company Number: AE-PFIZER INC-PV202500087380

PATIENT
  Age: 52 Year
  Sex: Female

DRUGS (12)
  1. IBRANCE [Suspect]
     Active Substance: PALBOCICLIB
     Indication: Breast cancer metastatic
     Dosage: 125 MG ONCE DAILY FOR 21 DAYS FOLLOWED BY 7 DAYS OFF, FOR 63 DAY(S)
     Route: 048
     Dates: start: 20250619
  2. ACETAMINOPHEN [Suspect]
     Active Substance: ACETAMINOPHEN
     Dosage: 1000 MG, 3X/DAY FOR 90 DAY(S)
     Route: 048
     Dates: start: 20250619
  3. ATORVASTATIN [Suspect]
     Active Substance: ATORVASTATIN
     Dosage: 20 MG, 1X/DAY, BEDTIME FOR 90 DAY(S)
     Route: 048
     Dates: start: 20250619
  4. CALCIUM CARBONATE\VITAMIN D [Suspect]
     Active Substance: CALCIUM CARBONATE\VITAMIN D
     Dosage: 1 DF (600 MG- 200 UNITS), 3X/DAY
     Route: 048
     Dates: start: 20250619
  5. VITAMIN D3 [Suspect]
     Active Substance: CHOLECALCIFEROL
     Dosage: 50,000 UNITS Q7DAY FOR 90 DAY(S)
     Route: 048
     Dates: start: 20250619
  6. DESLORATADINE [Suspect]
     Active Substance: DESLORATADINE
     Dosage: 5 MG, DAILY FOR 90 DAY(S)
     Route: 048
     Dates: start: 20250619
  7. DICLOFENAC [Suspect]
     Active Substance: DICLOFENAC
     Dosage: 40 MG, 2X/DAY FOR 90 DAY(S), 1% EMULGEL DISPENSER
     Route: 061
     Dates: start: 20250619
  8. SOAP [Suspect]
     Active Substance: SOAP
     Dosage: 1 APP CREAM BID FOR 90 DAY(S)
     Route: 061
     Dates: start: 20250619
  9. FERROUS SULFATE\FOLIC ACID [Suspect]
     Active Substance: FERROUS SULFATE\FOLIC ACID
     Dosage: 1 CAP BID FOR 90 DAY(S)
     Route: 048
     Dates: start: 20250619
  10. LETROZOLE [Suspect]
     Active Substance: LETROZOLE
     Dosage: 2.5 MG, 1X/DAY FOR 90 DAY(S)
     Route: 048
     Dates: start: 20250619
  11. NIFEDIPINE [Suspect]
     Active Substance: NIFEDIPINE
     Dosage: 30 MG, 1X/DAY FOR 90 DAY(S)
     Route: 048
     Dates: start: 20250619
  12. MAGNESIUM OXIDE [Suspect]
     Active Substance: MAGNESIUM OXIDE
     Dosage: 400 MG, DAILY FOR 90 DAY(S)
     Route: 048
     Dates: start: 20250619

REACTIONS (6)
  - Chronic kidney disease [Unknown]
  - Anaemia of malignant disease [Unknown]
  - Anaemia of pregnancy [Unknown]
  - Anaemia [Unknown]
  - Glucose tolerance impaired in pregnancy [Unknown]
  - Oestrogen receptor assay positive [Unknown]
